FAERS Safety Report 24242961 (Version 1)
Quarter: 2024Q3

REPORT INFORMATION
  Report Type: Spontaneous
  Country: US (occurrence: None)
  Receive Date: 20240822
  Receipt Date: 20240822
  Transmission Date: 20241016
  Serious: Yes (Other)
  Sender: Public
  Company Number: None

PATIENT
  Age: 65 Year
  Sex: Female
  Weight: 54.9 kg

DRUGS (7)
  1. RECLAST [Suspect]
     Active Substance: ZOLEDRONIC ACID
     Indication: Osteoarthritis
     Dates: start: 20240808, end: 20240808
  2. LISINOPRIL [Concomitant]
  3. FUROSEMIDE [Concomitant]
  4. NIFEDIPINE [Concomitant]
  5. MINOXIDIL [Concomitant]
  6. VITAMIN D3 [Concomitant]
     Active Substance: CHOLECALCIFEROL
  7. Rogaine 5% Men^s Topical Solution [Concomitant]

REACTIONS (12)
  - Feeling abnormal [None]
  - Joint swelling [None]
  - Erythema [None]
  - Infusion related reaction [None]
  - Pain of skin [None]
  - Musculoskeletal stiffness [None]
  - Diaphragmalgia [None]
  - Back pain [None]
  - Pain in extremity [None]
  - Arthralgia [None]
  - Asthenia [None]
  - Skin disorder [None]

NARRATIVE: CASE EVENT DATE: 20240808
